FAERS Safety Report 20910145 (Version 5)
Quarter: 2022Q3

REPORT INFORMATION
  Report Type: Report from Study
  Country: US (occurrence: US)
  Receive Date: 20220603
  Receipt Date: 20220803
  Transmission Date: 20221027
  Serious: No
  Sender: FDA-Public Use
  Company Number: US-NOVARTISTESTPH-NVSC2022US126967

PATIENT
  Sex: Female

DRUGS (3)
  1. ENTRESTO [Suspect]
     Active Substance: SACUBITRIL\VALSARTAN
     Indication: Product used for unknown indication
     Dosage: 1 DOSAGE FORM, BID, 24/26 MG
     Route: 048
     Dates: start: 202104
  2. ENTRESTO [Suspect]
     Active Substance: SACUBITRIL\VALSARTAN
     Dosage: UNK
     Route: 048
  3. ENTRESTO [Suspect]
     Active Substance: SACUBITRIL\VALSARTAN
     Dosage: UNK
     Route: 048

REACTIONS (8)
  - COVID-19 [Recovered/Resolved]
  - Abdominal discomfort [Unknown]
  - Decreased appetite [Unknown]
  - Constipation [Unknown]
  - Fatigue [Unknown]
  - Asthenia [Unknown]
  - Dizziness [Recovering/Resolving]
  - Hypotension [Recovering/Resolving]
